FAERS Safety Report 11284094 (Version 1)
Quarter: 2015Q3

REPORT INFORMATION
  Report Type: Report from Study
  Country: JP (occurrence: JP)
  Receive Date: 20150720
  Receipt Date: 20150720
  Transmission Date: 20151125
  Serious: Yes (Other)
  Sender: FDA-Public Use
  Company Number: JP-ASTELLAS-2015US025733

PATIENT

DRUGS (1)
  1. ERLOTINIB [Suspect]
     Active Substance: ERLOTINIB
     Indication: NON-SMALL CELL LUNG CANCER
     Dosage: UNK, UNKNOWN FREQ.
     Route: 065

REACTIONS (6)
  - Anaemia [Unknown]
  - Leukopenia [Unknown]
  - Neutropenia [Unknown]
  - Renal disorder [Unknown]
  - Liver disorder [Unknown]
  - Febrile neutropenia [Unknown]
